FAERS Safety Report 4677262-9 (Version None)
Quarter: 2005Q2

REPORT INFORMATION
  Report Type: 
  Country: None (occurrence: None)
  Receive Date: 20050526
  Receipt Date: 20050516
  Transmission Date: 20051028
  Serious: Yes (Hospitalization)
  Sender: FDA-Public Use
  Company Number: 11158

PATIENT
  Age: 80 Year
  Sex: Female

DRUGS (4)
  1. AMIODARONE HCL [Suspect]
     Indication: ISCHAEMIC CARDIOMYOPATHY
     Dosage: 200 MG
  2. AMIODARONE HCL [Suspect]
     Indication: SUPRAVENTRICULAR EXTRASYSTOLES
     Dosage: 200 MG
  3. DIPYRIDAMOLE [Concomitant]
  4. NITRATED PATCH [Concomitant]

REACTIONS (5)
  - HEPATIC FIBROSIS [None]
  - HEPATIC STEATOSIS [None]
  - HEPATITIS [None]
  - HEPATITIS CHOLESTATIC [None]
  - HEPATOTOXICITY [None]
